FAERS Safety Report 7634984-5 (Version None)
Quarter: 2011Q3

REPORT INFORMATION
  Report Type: 
  Country: None (occurrence: None)
  Receive Date: 20110718
  Receipt Date: 20110701
  Transmission Date: 20111222
  Serious: Yes (Hospitalization, Other)
  Sender: FDA-Public Use
  Company Number: AUR-APL-2011-02715

PATIENT
  Age: 57 Year
  Sex: Male

DRUGS (10)
  1. AMLODIPINE [Concomitant]
  2. CARVEDILOL [Concomitant]
  3. NITROGLYCERIN [Concomitant]
  4. ISOSORBIDE MONONITRATE [Concomitant]
  5. NAFTIDROFURYL OXALATE (NAFTIDROFURYL OXALATE) [Concomitant]
  6. SIMVASTATIN [Suspect]
     Indication: HYPERCHOLESTEROLAEMIA
     Dosage: (1 D),ORAL
     Route: 048
     Dates: start: 20060727, end: 20110522
  7. RANEXA [Suspect]
     Indication: ANGINA PECTORIS
     Dosage: 750 MG (375 MG,2 IN 1 D),ORAL
     Route: 048
     Dates: start: 20110407, end: 20110505
  8. ASPIRIN [Concomitant]
  9. RAMIPRIL [Concomitant]
  10. TRIMETHOPRIM [Concomitant]

REACTIONS (3)
  - VOMITING [None]
  - RHABDOMYOLYSIS [None]
  - MALAISE [None]
